FAERS Safety Report 7073070-2 (Version None)
Quarter: 2010Q4

REPORT INFORMATION
  Report Type: 
  Country: None (occurrence: None)
  Receive Date: 20101029
  Receipt Date: 20100503
  Transmission Date: 20110411
  Serious: No
  Sender: FDA-Public Use
  Company Number: A0855876A

PATIENT
  Age: 60 Year
  Sex: Female

DRUGS (4)
  1. ADVAIR DISKUS 100/50 [Suspect]
     Indication: ASTHMA
     Dosage: 1PUFF TWICE PER DAY
     Route: 055
     Dates: start: 20080101
  2. BLOOD PRESSURE MEDICATION [Concomitant]
  3. VITAMINS [Concomitant]
  4. LAXATIVE [Concomitant]

REACTIONS (5)
  - LIP DISORDER [None]
  - LIP PAIN [None]
  - ORAL DISCOMFORT [None]
  - SINUSITIS [None]
  - VITAMIN A DEFICIENCY [None]
